FAERS Safety Report 10063303 (Version 1)
Quarter: 2014Q2

REPORT INFORMATION
  Report Type: Spontaneous
  Country: US (occurrence: US)
  Receive Date: 20140407
  Receipt Date: 20140407
  Transmission Date: 20141212
  Serious: No
  Sender: FDA-Public Use
  Company Number: US-009507513-1404USA003498

PATIENT
  Age: 70 Year
  Sex: Female

DRUGS (3)
  1. NASONEX [Suspect]
     Indication: RHINITIS ALLERGIC
     Dosage: UNK
     Route: 045
     Dates: start: 20140324
  2. ZYRTEC [Concomitant]
     Dosage: UNK
  3. STATIN (UNSPECIFIED) [Concomitant]

REACTIONS (1)
  - Dysgeusia [Unknown]
